FAERS Safety Report 9675338 (Version 2)
Quarter: 2013Q4

REPORT INFORMATION
  Report Type: Spontaneous
  Country: FR (occurrence: FR)
  Receive Date: 20131107
  Receipt Date: 20131107
  Transmission Date: 20140711
  Serious: Yes (Other)
  Sender: FDA-Public Use
  Company Number: FR-ABBVIE-13P-056-1135084-00

PATIENT
  Age: 77 Year
  Sex: Male

DRUGS (5)
  1. LEUPROLIDE ACETATE [Suspect]
     Indication: PROSTATE CANCER
     Dosage: PREP INJ
     Route: 050
     Dates: start: 20121127
  2. LEUPROLIDE ACETATE [Suspect]
     Dosage: PREP INJ
     Route: 050
     Dates: start: 20130526
  3. LEUPROLIDE ACETATE [Suspect]
     Dosage: PREP INJ
     Route: 050
     Dates: start: 20120527
  4. NISISCO [Concomitant]
     Indication: PRODUCT USED FOR UNKNOWN INDICATION
     Dates: start: 2000
  5. ORMANDYL [Concomitant]
     Indication: PRODUCT USED FOR UNKNOWN INDICATION
     Dates: start: 20120509

REACTIONS (5)
  - Injection site abscess [Recovered/Resolved with Sequelae]
  - Injection site inflammation [Recovered/Resolved]
  - Injection site extravasation [Recovered/Resolved with Sequelae]
  - Gait disturbance [Recovered/Resolved with Sequelae]
  - Pain in extremity [Recovered/Resolved with Sequelae]
